FAERS Safety Report 4471317-X (Version None)
Quarter: 2004Q4

REPORT INFORMATION
  Report Type: 
  Country: None (occurrence: None)
  Receive Date: 20041006
  Receipt Date: 20040922
  Transmission Date: 20050328
  Serious: Yes (Hospitalization)
  Sender: FDA-Public Use
  Company Number: 200904

PATIENT
  Age: 43 Year
  Sex: Female

DRUGS (2)
  1. AVONEX [Suspect]
     Indication: MULTIPLE SCLEROSIS
     Dosage: 30 MCG QW IM
     Route: 030
     Dates: start: 20040501
  2. METOPROLOL [Concomitant]

REACTIONS (4)
  - CHILLS [None]
  - DEEP VEIN THROMBOSIS [None]
  - FATIGUE [None]
  - VISION BLURRED [None]
